FAERS Safety Report 8407428-3 (Version None)
Quarter: 2012Q2

REPORT INFORMATION
  Report Type: 
  Country: None (occurrence: None)
  Receive Date: 20120323
  Receipt Date: 20111130
  Transmission Date: 20120825
  Serious: Yes (Other)
  Sender: FDA-Public Use
  Company Number: 163-21880-11120082

PATIENT
  Age: 76 Year
  Sex: Male

DRUGS (4)
  1. LEVOTHROID [Concomitant]
  2. HYDROCODONE/APAP (VICODIN0 [Concomitant]
  3. REVLIMID [Suspect]
     Indication: MULTIPLE MYELOMA
     Dosage: 10 MG, DAILY X 21 OF 28 DAYS, PO 15 MG, DAILY X 21 OF 28 DAYS, PO
     Route: 048
     Dates: start: 20100901
  4. REVLIMID [Suspect]
     Indication: MULTIPLE MYELOMA
     Dosage: 10 MG, DAILY X 21 OF 28 DAYS, PO 15 MG, DAILY X 21 OF 28 DAYS, PO
     Route: 048
     Dates: start: 20110601, end: 20110701

REACTIONS (3)
  - MULTIPLE MYELOMA [None]
  - DRUG RESISTANCE [None]
  - NEOPLASM PROGRESSION [None]
